FAERS Safety Report 6408950-1 (Version None)
Quarter: 2009Q4

REPORT INFORMATION
  Report Type: 
  Country: None (occurrence: None)
  Receive Date: 20091019
  Receipt Date: 20091007
  Transmission Date: 20100525
  Serious: Yes (Other)
  Sender: FDA-Public Use
  Company Number: 2009AL006518

PATIENT
  Age: 79 Year
  Sex: Male

DRUGS (12)
  1. NIFEDIPINE [Suspect]
     Indication: DUODENAL ULCER
     Dosage: 5 MG, PO
     Route: 048
  2. LISINOPRIL [Concomitant]
  3. FLOMAX [Concomitant]
  4. ALBUTEROL SULFATE AUTOHALER [Concomitant]
  5. FLUTICASONE [Concomitant]
  6. IPRATROPIUM BROMIDE [Concomitant]
  7. ALBUTEROL [Concomitant]
  8. ACETAMINOPHEN [Concomitant]
  9. LANSOPRAZOLE [Concomitant]
  10. CARBOCISTEINE [Concomitant]
  11. SERETIDE [Concomitant]
  12. COMBIVENT [Concomitant]

REACTIONS (3)
  - DRUG INTERACTION [None]
  - DYSPNOEA [None]
  - ORTHOSTATIC HYPOTENSION [None]
